FAERS Safety Report 6836025-6 (Version None)
Quarter: 2010Q3

REPORT INFORMATION
  Report Type: 
  Country: None (occurrence: None)
  Receive Date: 20100713
  Receipt Date: 20100706
  Transmission Date: 20110219
  Serious: Yes (Hospitalization)
  Sender: FDA-Public Use
  Company Number: A0869816A

PATIENT
  Age: 67 Year
  Sex: Female

DRUGS (1)
  1. ADVAIR DISKUS 100/50 [Suspect]
     Indication: PRODUCT USED FOR UNKNOWN INDICATION
     Route: 055
     Dates: start: 20090821

REACTIONS (3)
  - CARDIAC DISORDER [None]
  - CARDIAC PACEMAKER BATTERY REPLACEMENT [None]
  - CHRONIC OBSTRUCTIVE PULMONARY DISEASE [None]
